FAERS Safety Report 10056113 (Version 1)
Quarter: 2014Q2

REPORT INFORMATION
  Report Type: Spontaneous
  Country: TR (occurrence: None)
  Receive Date: 20140401
  Receipt Date: 20140401
  Transmission Date: 20141212
  Serious: Yes (Life-Threatening, Other)
  Sender: FDA-Public Use
  Company Number: ADR-2014UNK017

PATIENT
  Age: 48 Year
  Sex: Male

DRUGS (1)
  1. SERTRALINE [Suspect]
     Indication: MAJOR DEPRESSION
     Route: 048

REACTIONS (3)
  - Cardiac arrest [None]
  - Ventricular fibrillation [None]
  - Hypokalaemia [None]
